FAERS Safety Report 10237496 (Version 1)
Quarter: 2014Q2

REPORT INFORMATION
  Report Type: Spontaneous
  Country: FR (occurrence: FR)
  Receive Date: 20140615
  Receipt Date: 20140615
  Transmission Date: 20141212
  Serious: Yes (Hospitalization)
  Sender: FDA-Public Use
  Company Number: FR-BRISTOL-MYERS SQUIBB COMPANY-20972519

PATIENT
  Age: 47 Year
  Sex: Male

DRUGS (2)
  1. ELIQUIS [Suspect]
     Route: 048
     Dates: start: 201405, end: 20140509
  2. FEBUXOSTAT [Concomitant]
     Route: 048

REACTIONS (5)
  - Diarrhoea [Recovered/Resolved]
  - Vomiting [Unknown]
  - Haemorrhoids [Unknown]
  - Transaminases increased [Recovered/Resolved]
  - Gamma-glutamyltransferase increased [Recovering/Resolving]
